FAERS Safety Report 13741542 (Version 7)
Quarter: 2018Q4

REPORT INFORMATION
  Report Type: Spontaneous
  Country: US (occurrence: US)
  Receive Date: 20170711
  Receipt Date: 20181109
  Transmission Date: 20190204
  Serious: No
  Sender: FDA-Public Use
  Company Number: US-PFIZER INC-2017294654

PATIENT
  Age: 69 Year
  Sex: Female

DRUGS (3)
  1. XELJANZ XR [Suspect]
     Active Substance: TOFACITINIB CITRATE
     Indication: RHEUMATOID ARTHRITIS
     Dosage: 11 MG, UNK
     Dates: start: 20161202
  2. XELJANZ XR [Suspect]
     Active Substance: TOFACITINIB CITRATE
     Dosage: 11 MG, 1X/DAY(QD)
     Route: 048
     Dates: start: 20170105
  3. XELJANZ XR [Suspect]
     Active Substance: TOFACITINIB CITRATE
     Dosage: 11 MG, UNK
     Dates: start: 20170104

REACTIONS (9)
  - Joint swelling [Unknown]
  - Fall [Unknown]
  - Malaise [Unknown]
  - Skin discolouration [Unknown]
  - Ligament sprain [Recovered/Resolved]
  - Back pain [Not Recovered/Not Resolved]
  - Ulcer [Unknown]
  - Infection [Unknown]
  - Rash [Unknown]

NARRATIVE: CASE EVENT DATE: 20170609
